FAERS Safety Report 14944565 (Version 1)
Quarter: 2018Q2

REPORT INFORMATION
  Report Type: Spontaneous
  Country: US (occurrence: US)
  Receive Date: 20180529
  Receipt Date: 20180529
  Transmission Date: 20180711
  Serious: No
  Sender: FDA-Public Use
  Company Number: US-ELI_LILLY_AND_COMPANY-US201805011901

PATIENT
  Age: 64 Year
  Sex: Male

DRUGS (3)
  1. HUMALOG [Suspect]
     Active Substance: INSULIN LISPRO
     Indication: TYPE 2 DIABETES MELLITUS
     Dosage: 08 U, EACH MORNING AM
     Route: 058
     Dates: start: 20170804
  2. HUMALOG [Suspect]
     Active Substance: INSULIN LISPRO
     Dosage: 02 U, AT DINNER
     Route: 058
     Dates: start: 20170804
  3. HUMALOG [Suspect]
     Active Substance: INSULIN LISPRO
     Dosage: 02 U, MID-DAY
     Route: 058
     Dates: start: 20170804

REACTIONS (1)
  - Blood glucose increased [Recovering/Resolving]

NARRATIVE: CASE EVENT DATE: 20180521
